FAERS Safety Report 17391943 (Version 3)
Quarter: 2020Q1

REPORT INFORMATION
  Report Type: Spontaneous
  Country: US (occurrence: US)
  Receive Date: 20200207
  Receipt Date: 20200324
  Transmission Date: 20200409
  Serious: Yes (Hospitalization)
  Sender: FDA-Public Use
  Company Number: US-AUROBINDO-AUR-APL-2020-005929

PATIENT
  Age: 5 Year
  Sex: Female
  Weight: 24 kg

DRUGS (1)
  1. MOXIFLOXACIN OPHTHALMIC SOLUTION USP 0.5 % W/V [Suspect]
     Active Substance: MOXIFLOXACIN
     Indication: OCULAR HYPERAEMIA
     Dosage: 1 DROP, 3 TIMES A DAY
     Route: 065
     Dates: start: 20200124

REACTIONS (2)
  - Diarrhoea [Not Recovered/Not Resolved]
  - Vomiting [Not Recovered/Not Resolved]

NARRATIVE: CASE EVENT DATE: 20200125
